FAERS Safety Report 5845854-7 (Version None)
Quarter: 2008Q3

REPORT INFORMATION
  Report Type: 
  Country: None (occurrence: None)
  Receive Date: 20080814
  Receipt Date: 20080807
  Transmission Date: 20090109
  Serious: Yes (Hospitalization)
  Sender: FDA-Public Use
  Company Number: JP-BOEHRINGER INGELHEIM GMBH, GERMANY-2008-BP-12767NB

PATIENT
  Sex: Female
  Weight: 30 kg

DRUGS (3)
  1. SPIRIVA [Suspect]
     Indication: EMPHYSEMA
     Route: 055
     Dates: start: 20070323, end: 20070923
  2. THEO-DUR [Concomitant]
     Indication: SPUTUM RETENTION
     Route: 048
     Dates: start: 20070703, end: 20070923
  3. SEREVENT [Concomitant]
     Indication: DRUG EFFECT DECREASED
     Route: 055
     Dates: start: 20070828, end: 20070923

REACTIONS (1)
  - CONDITION AGGRAVATED [None]
